FAERS Safety Report 25544164 (Version 1)
Quarter: 2025Q3

REPORT INFORMATION
  Report Type: Spontaneous
  Country: CA (occurrence: CA)
  Receive Date: 20250711
  Receipt Date: 20250711
  Transmission Date: 20251020
  Serious: Yes (Life-Threatening, Hospitalization)
  Sender: FRESENIUS KABI
  Company Number: CA-FreseniusKabi-FK202509268

PATIENT
  Age: 48 Year
  Sex: Male
  Weight: 47.5 kg

DRUGS (1)
  1. MAGNESIUM SULFATE [Suspect]
     Active Substance: MAGNESIUM SULFATE
     Indication: Seizure
     Route: 042
     Dates: start: 20250317, end: 20250317

REACTIONS (3)
  - Altered state of consciousness [Recovered/Resolved]
  - Overdose [Recovered/Resolved]
  - Dose calculation error [Recovered/Resolved]

NARRATIVE: CASE EVENT DATE: 20250317
